FAERS Safety Report 7270303-4 (Version None)
Quarter: 2011Q1

REPORT INFORMATION
  Report Type: 
  Country: None (occurrence: None)
  Receive Date: 20110202
  Receipt Date: 20101217
  Transmission Date: 20110831
  Serious: Yes (Other)
  Sender: FDA-Public Use
  Company Number: US-BAYER-200939676NA

PATIENT
  Sex: Female
  Weight: 89 kg

DRUGS (2)
  1. YASMIN [Suspect]
     Indication: CONTRACEPTION
  2. YAZ [Suspect]
     Indication: CONTRACEPTION

REACTIONS (4)
  - CHOLELITHIASIS [None]
  - NAUSEA [None]
  - CHOLECYSTITIS [None]
  - VOMITING [None]
